FAERS Safety Report 5810090-7 (Version None)
Quarter: 2008Q3

REPORT INFORMATION
  Report Type: 
  Country: None (occurrence: None)
  Receive Date: 20080715
  Receipt Date: 20080626
  Transmission Date: 20090109
  Serious: Yes (Death, Hospitalization)
  Sender: FDA-Public Use
  Company Number: US-BRISTOL-MYERS SQUIBB COMPANY-14179014

PATIENT
  Age: 58 Year
  Sex: Female

DRUGS (7)
  1. IXEMPRA KIT [Suspect]
     Indication: BREAST CANCER METASTATIC
     Dosage: DOSE -30 MG/M2 A TOTAL OF 50MG
     Route: 042
     Dates: start: 20080408, end: 20080408
  2. NEULASTA [Suspect]
  3. XELODA [Suspect]
     Dosage: DOSE - 500 MG, 4 TABS PO BID, DAYS 1-14 FOR 21 DAY CYCLE
     Route: 048
  4. SODIUM CHLORIDE [Concomitant]
     Indication: PREMEDICATION
  5. DECADRON [Concomitant]
     Indication: PREMEDICATION
  6. BENADRYL [Concomitant]
     Indication: PREMEDICATION
  7. XANAX [Concomitant]
     Indication: PREMEDICATION

REACTIONS (5)
  - DIARRHOEA [None]
  - NEUTROPENIA [None]
  - SEPSIS [None]
  - STOMATITIS [None]
  - THROMBOCYTOPENIA [None]
